FAERS Safety Report 7731399-6 (Version None)
Quarter: 2011Q3

REPORT INFORMATION
  Report Type: 
  Country: None (occurrence: None)
  Receive Date: 20110906
  Receipt Date: 20110901
  Transmission Date: 20111222
  Serious: Yes (Other)
  Sender: FDA-Public Use
  Company Number: JP-PFIZER INC-2011171538

PATIENT
  Age: 85 Year
  Sex: Female
  Weight: 33.6 kg

DRUGS (14)
  1. VESICARE [Concomitant]
     Indication: DYSURIA
     Dosage: 5 MG, 1X/DAY
  2. PURSENNID [Concomitant]
     Indication: CONSTIPATION
     Dosage: 24 MG, 1X/DAY
  3. LANSOPRAZOLE [Concomitant]
     Indication: GASTRITIS PROPHYLAXIS
     Dosage: 15 MG, 1X/DAY
  4. CELECOXIB [Concomitant]
     Indication: BACK PAIN
     Dosage: 100 MG, 2X/DAY
     Dates: start: 20110629
  5. LENDORMIN [Suspect]
     Indication: INSOMNIA
     Dosage: 0.25 MG, 1X/DAY
     Dates: start: 20110629, end: 20110710
  6. MAGMITT [Concomitant]
     Indication: CONSTIPATION
     Dosage: 500 MG, 3X/DAY
  7. PRAVASTATIN SODIUM [Concomitant]
     Indication: HYPERLIPIDAEMIA
     Dosage: 5 MG, 1X/DAY
  8. MUCOSOLVAN [Concomitant]
     Indication: BRONCHITIS CHRONIC
     Dosage: 15 MG, 3X/DAY
  9. LYRICA [Suspect]
     Indication: NEURALGIA
     Dosage: 25 MG, 2X/DAY
     Route: 048
     Dates: start: 20110706, end: 20110708
  10. METHYCOBAL [Concomitant]
     Indication: NEUROPATHY PERIPHERAL
     Dosage: 500 MG, 3X/DAY
  11. ETODOLAC [Concomitant]
     Dosage: UNK
  12. POLITOSE [Concomitant]
     Indication: GASTRITIS
     Dosage: 1 DF, 3X/DAY
  13. GASMOTIN [Concomitant]
     Indication: GASTRITIS
     Dosage: 5 MG, 3X/DAY
  14. DIOVAN [Concomitant]
     Indication: HYPERTENSION
     Dosage: 80 MG, 1X/DAY

REACTIONS (5)
  - URINARY INCONTINENCE [None]
  - DEMENTIA [None]
  - FAECAL INCONTINENCE [None]
  - DIZZINESS [None]
  - ABNORMAL BEHAVIOUR [None]
